FAERS Safety Report 4313190-6 (Version None)
Quarter: 2004Q1

REPORT INFORMATION
  Report Type: 
  Country: None (occurrence: None)
  Receive Date: 20040308
  Receipt Date: 20040114
  Transmission Date: 20041129
  Serious: Yes (Hospitalization)
  Sender: FDA-Public Use
  Company Number: DE-BRISTOL-MYERS SQUIBB COMPANY-12478954

PATIENT
  Age: 39 Year
  Sex: Female
  Weight: 64 kg

DRUGS (4)
  1. TAXOL [Suspect]
     Indication: OVARIAN CANCER
     Dosage: CYCLES ADMINISTERED ON 17-NOV-01, 08-DEC-01, 28-DEC-01, 17-JAN-02, 11-FEB-02, 04-MAR-02
     Route: 042
     Dates: start: 20020117, end: 20020117
  2. TAXOL [Suspect]
     Indication: BLADDER CANCER
     Dosage: CYCLES ADMINISTERED ON 17-NOV-01, 08-DEC-01, 28-DEC-01, 17-JAN-02, 11-FEB-02, 04-MAR-02
     Route: 042
     Dates: start: 20020117, end: 20020117
  3. CARBOPLATIN [Suspect]
     Indication: OVARIAN CANCER
     Dosage: CYCLES ADMINISTERED ON 17-NOV-01, 08-DEC-01, 28-DEC-01, 17-JAN-02, 11-FEB-02, 04-MAR-02
     Route: 042
     Dates: start: 20020117, end: 20020117
  4. CARBOPLATIN [Suspect]
     Indication: BLADDER CANCER
     Dosage: CYCLES ADMINISTERED ON 17-NOV-01, 08-DEC-01, 28-DEC-01, 17-JAN-02, 11-FEB-02, 04-MAR-02
     Route: 042
     Dates: start: 20020117, end: 20020117

REACTIONS (7)
  - ANAEMIA [None]
  - DIARRHOEA [None]
  - FEBRILE NEUTROPENIA [None]
  - HYPOKALAEMIA [None]
  - LEUKOPENIA [None]
  - THROMBOCYTOPENIA [None]
  - VOMITING [None]
